FAERS Safety Report 24242072 (Version 1)
Quarter: 2024Q3

REPORT INFORMATION
  Report Type: Spontaneous
  Country: US (occurrence: None)
  Receive Date: 20240822
  Receipt Date: 20240822
  Transmission Date: 20241017
  Serious: Yes (Other)
  Sender: Public
  Company Number: None

PATIENT
  Age: 41 Year
  Sex: Female
  Weight: 72.57 kg

DRUGS (15)
  1. EMGALITY [Suspect]
     Active Substance: GALCANEZUMAB-GNLM
     Indication: Migraine
     Dosage: ONCE MONTHLY SUBCUTANEOUS
     Route: 058
     Dates: start: 20240315
  2. BOTOX [Suspect]
     Active Substance: ONABOTULINUMTOXINA
  3. VIIBRYD [Concomitant]
     Active Substance: VILAZODONE HYDROCHLORIDE
  4. ATIVAN [Concomitant]
     Active Substance: LORAZEPAM
  5. ALBUTEROL [Concomitant]
     Active Substance: ALBUTEROL
  6. NURTEC ODT [Concomitant]
     Active Substance: RIMEGEPANT SULFATE
  7. ERRIN [Concomitant]
     Active Substance: NORETHINDRONE
  8. BUSPIRONE [Concomitant]
     Active Substance: BUSPIRONE HYDROCHLORIDE
  9. ABILIFY [Concomitant]
     Active Substance: ARIPIPRAZOLE
  10. NORETHINDRONE [Concomitant]
     Active Substance: NORETHINDRONE
  11. VITAMINS [Concomitant]
     Active Substance: VITAMINS
  12. VITAMIN C [Concomitant]
     Active Substance: ASCORBIC ACID
  13. BIOTIN [Concomitant]
     Active Substance: BIOTIN
  14. PANTROPRAZOLE [Concomitant]
  15. TYLENOL [Concomitant]
     Active Substance: ACETAMINOPHEN

REACTIONS (1)
  - Alopecia [None]

NARRATIVE: CASE EVENT DATE: 20240822
